FAERS Safety Report 9190025 (Version 1)
Quarter: 2013Q1

REPORT INFORMATION
  Report Type: Spontaneous
  Country: US (occurrence: US)
  Receive Date: 20130326
  Receipt Date: 20130326
  Transmission Date: 20140127
  Serious: No
  Sender: FDA-Public Use
  Company Number: US-PFIZER INC-2013095419

PATIENT
  Sex: Male

DRUGS (2)
  1. PANTOPRAZOLE [Suspect]
     Dosage: UNK
  2. MONTELUKAST [Suspect]
     Dosage: UNK

REACTIONS (4)
  - Incorrect dose administered [Unknown]
  - Malaise [Unknown]
  - Fatigue [Unknown]
  - Stress [Unknown]
